FAERS Safety Report 4924573-5 (Version None)
Quarter: 2006Q1

REPORT INFORMATION
  Report Type: 
  Country: None (occurrence: None)
  Receive Date: 20060222
  Receipt Date: 20060130
  Transmission Date: 20060701
  Serious: Yes (Hospitalization)
  Sender: FDA-Public Use
  Company Number: GBR-2006-0002122

PATIENT
  Age: 63 Year
  Sex: Male

DRUGS (12)
  1. HYDROMORPHONE HCL [Suspect]
     Dosage: 10 MG, DAILY, ORAL
     Route: 048
     Dates: start: 20051121
  2. TAXOTERE [Suspect]
     Indication: RADIOTHERAPY
     Dosage: INTRAVENOUS
     Route: 042
     Dates: start: 20050607
  3. ZOMETA [Suspect]
     Dosage: 4 MG, DAILY, INTRAVENOUS
     Route: 042
     Dates: start: 20050530
  4. AMITRIPTYLINE HCL [Suspect]
     Dosage: 25 MG, DAILY
     Dates: start: 20051125
  5. XATRAL (ALFUZOSIN) [Suspect]
     Dosage: 5 MG, DAILY
     Dates: start: 20051117
  6. NEURONTIN [Concomitant]
  7. PREDNISONE [Concomitant]
  8. CARDEGIC (ACETYLSALICYLATE LYSINE) [Concomitant]
  9. DAFALGAN [Concomitant]
  10. FORLAX (MACROLOG) [Concomitant]
  11. ESOMEPRAZOLE (ESOMEPRAZOLE) [Concomitant]
  12. MORPHINE [Concomitant]

REACTIONS (3)
  - BONE PAIN [None]
  - OSTEOLYSIS [None]
  - OSTEONECROSIS [None]
